FAERS Safety Report 7667747-5 (Version None)
Quarter: 2011Q3

REPORT INFORMATION
  Report Type: 
  Country: None (occurrence: None)
  Receive Date: 20110806
  Receipt Date: 20110303
  Transmission Date: 20111222
  Serious: No
  Sender: FDA-Public Use
  Company Number: US-ABBOTT-11P-163-0708834-00

PATIENT
  Sex: Female
  Weight: 77.18 kg

DRUGS (1)
  1. NIASPAN [Suspect]
     Indication: BLOOD CHOLESTEROL INCREASED
     Dosage: ONCE, AT BEDTIME
     Dates: start: 20110228, end: 20110228

REACTIONS (5)
  - PRURITUS [None]
  - SKIN BURNING SENSATION [None]
  - RASH PAPULAR [None]
  - FEELING HOT [None]
  - HYPERSENSITIVITY [None]
